FAERS Safety Report 21940831 (Version 1)
Quarter: 2023Q1

REPORT INFORMATION
  Report Type: Spontaneous
  Country: US (occurrence: US)
  Receive Date: 20230201
  Receipt Date: 20230201
  Transmission Date: 20230417
  Serious: Yes (Other)
  Sender: FDA-Public Use
  Company Number: US-ABBVIE-4290535

PATIENT
  Sex: Male

DRUGS (2)
  1. RINVOQ [Suspect]
     Active Substance: UPADACITINIB
     Indication: Rheumatoid arthritis
     Route: 048
     Dates: start: 202111, end: 202206
  2. XGEVA [Concomitant]
     Active Substance: DENOSUMAB
     Indication: Renal cancer metastatic

REACTIONS (1)
  - Clear cell renal cell carcinoma [Not Recovered/Not Resolved]
